FAERS Safety Report 9500279 (Version 1)
Quarter: 2013Q3

REPORT INFORMATION
  Report Type: Spontaneous
  Country: DE (occurrence: DE)
  Receive Date: 20130905
  Receipt Date: 20130905
  Transmission Date: 20140515
  Serious: Yes (Hospitalization)
  Sender: FDA-Public Use
  Company Number: DE-UCBSA-096257

PATIENT
  Sex: Female

DRUGS (1)
  1. LEGANTO [Suspect]
     Dosage: UNKNOWN DOSE

REACTIONS (3)
  - Unevaluable event [Unknown]
  - Palpitations [Unknown]
  - Hyperventilation [Unknown]
